FAERS Safety Report 7306738-0 (Version None)
Quarter: 2011Q1

REPORT INFORMATION
  Report Type: 
  Country: None (occurrence: None)
  Receive Date: 20110222
  Receipt Date: 20110217
  Transmission Date: 20110831
  Serious: Yes (Death, Hospitalization)
  Sender: FDA-Public Use
  Company Number: US-GILEAD-2011-0035688

PATIENT
  Sex: Female

DRUGS (1)
  1. LETAIRIS [Suspect]
     Indication: PULMONARY HYPERTENSION
     Route: 048
     Dates: start: 20100520, end: 20100523

REACTIONS (4)
  - DEATH [None]
  - FLUID RETENTION [None]
  - ARTERIOVENOUS FISTULA SITE INFECTION [None]
  - PULMONARY HYPERTENSION [None]
